FAERS Safety Report 6739040-6 (Version None)
Quarter: 2010Q2

REPORT INFORMATION
  Report Type: 
  Country: None (occurrence: None)
  Receive Date: 20100524
  Receipt Date: 20100524
  Transmission Date: 20101027
  Serious: Yes (Life-Threatening, Hospitalization)
  Sender: FDA-Public Use
  Company Number: None

PATIENT
  Age: 54 Year
  Sex: Male

DRUGS (1)
  1. SULFAMETHOXAZOLE AND TRIMETHOPRIM [Suspect]
     Indication: FURUNCLE
     Dosage: 800/160 MG TWICE DAILY PO
     Route: 048
     Dates: start: 20100308, end: 20100316

REACTIONS (3)
  - ANAPHYLACTIC REACTION [None]
  - ERYTHEMA MULTIFORME [None]
  - HYPOXIA [None]
